FAERS Safety Report 4780597-2 (Version None)
Quarter: 2005Q3

REPORT INFORMATION
  Report Type: 
  Country: None (occurrence: None)
  Receive Date: 20050927
  Receipt Date: 20040721
  Transmission Date: 20060218
  Serious: Yes (Death, Hospitalization)
  Sender: FDA-Public Use
  Company Number: US-ABBOTT-04P-163-0267875-00

PATIENT
  Sex: Male

DRUGS (13)
  1. RITONAVIR SOFT GELATIN CAPSULES [Suspect]
     Indication: HIV INFECTION
     Route: 048
     Dates: start: 20031119, end: 20040711
  2. TIPRANAVIR [Concomitant]
     Indication: HIV INFECTION
     Route: 048
     Dates: start: 20031119, end: 20040711
  3. TENOFOVIR [Concomitant]
     Indication: HIV INFECTION
     Route: 048
     Dates: end: 20040711
  4. FUZEON [Concomitant]
     Indication: HIV INFECTION
     Route: 058
     Dates: end: 20040711
  5. ACTOS [Concomitant]
     Indication: DRUG USE FOR UNKNOWN INDICATION
  6. AMITRIPTYLINE HCL [Concomitant]
     Indication: DRUG USE FOR UNKNOWN INDICATION
  7. LANSOPRAZOLE [Concomitant]
     Indication: DRUG USE FOR UNKNOWN INDICATION
  8. FENOFIBRATE [Concomitant]
     Indication: DRUG USE FOR UNKNOWN INDICATION
  9. CETIRIZINE HCL [Concomitant]
     Indication: DRUG USE FOR UNKNOWN INDICATION
  10. BACTRIM [Concomitant]
     Indication: DRUG USE FOR UNKNOWN INDICATION
  11. THYROID TAB [Concomitant]
     Indication: DRUG USE FOR UNKNOWN INDICATION
  12. SAQUINAVIR MESILATE [Concomitant]
     Indication: DRUG USE FOR UNKNOWN INDICATION
  13. HYDROCORTISONE [Concomitant]
     Indication: DRUG USE FOR UNKNOWN INDICATION

REACTIONS (3)
  - ANAEMIA [None]
  - CARDIOMYOPATHY [None]
  - RENAL FAILURE [None]
